FAERS Safety Report 9057743 (Version 1)
Quarter: 2013Q1

REPORT INFORMATION
  Report Type: Spontaneous
  Country: US (occurrence: None)
  Receive Date: 20130204
  Receipt Date: 20130204
  Transmission Date: 20140127
  Serious: Yes (Death)
  Sender: FDA-Public Use
  Company Number: None

PATIENT
  Age: 80 Year
  Sex: Female

DRUGS (7)
  1. LETAIRIS [Suspect]
     Indication: SCLERODERMA
     Route: 048
     Dates: start: 201212, end: 201301
  2. ADCIRCA [Concomitant]
  3. AMLODIPINE [Concomitant]
  4. ASA [Concomitant]
  5. OMEPRAZOLE [Concomitant]
  6. POTASSIUM [Concomitant]
  7. FERROUS SULFATE [Concomitant]

REACTIONS (2)
  - Cardiac failure congestive [None]
  - Pulmonary hypertension [None]
